FAERS Safety Report 4797249-5 (Version None)
Quarter: 2005Q4

REPORT INFORMATION
  Report Type: 
  Country: None (occurrence: None)
  Receive Date: 20051013
  Receipt Date: 20050930
  Transmission Date: 20060501
  Serious: Yes (Other)
  Sender: FDA-Public Use
  Company Number: PHBS2005IT14875

PATIENT
  Age: 62 Year
  Sex: Male

DRUGS (3)
  1. ZOMETA [Suspect]
     Indication: METASTASES TO BONE
     Dosage: UNK, QMO
     Route: 042
     Dates: start: 20030101, end: 20050101
  2. LUTEINIZING HORMONE-RELEASING HORMONE [Concomitant]
     Route: 065
  3. BICALUTAMIDE [Concomitant]
     Route: 065

REACTIONS (6)
  - BONE DEBRIDEMENT [None]
  - BONE DISORDER [None]
  - BONE PAIN [None]
  - DISEASE PROGRESSION [None]
  - METASTASES TO BONE [None]
  - OSTEONECROSIS [None]
